FAERS Safety Report 13377915 (Version 2)
Quarter: 2017Q2

REPORT INFORMATION
  Report Type: Spontaneous
  Country: US (occurrence: US)
  Receive Date: 20170328
  Receipt Date: 20170424
  Transmission Date: 20170830
  Serious: Yes (Disabling, Other)
  Sender: FDA-Public Use
  Company Number: US-SA-2017SA047870

PATIENT
  Age: 62 Year
  Sex: Female

DRUGS (3)
  1. SOLOSTAR [Concomitant]
     Active Substance: DEVICE
     Indication: TYPE 2 DIABETES MELLITUS
     Dates: start: 2016
  2. TOUJEO [Suspect]
     Active Substance: INSULIN GLARGINE
     Indication: TYPE 2 DIABETES MELLITUS
     Dosage: 134-145 UNITS
     Route: 065
     Dates: start: 2016
  3. VENLAFAXINE [Concomitant]
     Active Substance: VENLAFAXINE HYDROCHLORIDE

REACTIONS (13)
  - Fall [Unknown]
  - Headache [Unknown]
  - Paralysis [Unknown]
  - Grip strength decreased [Unknown]
  - Hypokinesia [Unknown]
  - Product use issue [Unknown]
  - Vertigo [Unknown]
  - Craniocerebral injury [Unknown]
  - Skull fracture [Unknown]
  - Bedridden [Unknown]
  - Memory impairment [Unknown]
  - Insomnia [Unknown]
  - Cervical vertebral fracture [Unknown]

NARRATIVE: CASE EVENT DATE: 2016
